FAERS Safety Report 10361785 (Version 1)
Quarter: 2014Q1

REPORT INFORMATION
  Report Type: Spontaneous
  Country: US (occurrence: None)
  Receive Date: 20140306
  Receipt Date: 20140306
  Transmission Date: 20141002
  Serious: Yes (Hospitalization)
  Sender: FDA-Public Use
  Company Number: 163-21880-13072604

PATIENT
  Age: 64 Year
  Sex: Female

DRUGS (13)
  1. REVLIMID [Suspect]
     Indication: PLASMA CELL MYELOMA
     Dosage: 25 MG, 14 IN 21 D, PO
     Route: 048
     Dates: start: 20130531
  2. OMEPRAZOLE (OMEPRAZOLE) (UNKNOWN) [Concomitant]
  3. MULTIVITAMINS (MULTIVITAMINS) (UNKNOWN) [Concomitant]
  4. CALCIUM (CALCIUM) (UNKNOWN) [Concomitant]
  5. FISH OIL (FISH OIL) (UNKNOWN) [Concomitant]
  6. DEXAMETHASONE (DEXAMETHASONE) (UNKNOWN) [Concomitant]
  7. ZOMETA (ZOLEDRONIC ACID) (UNKNOWN) [Concomitant]
  8. VENLAFAXINE HCL (VENLAFAXINE HYDROCHLORIDE) (UNKNOWN) [Concomitant]
  9. ACYCLOVIR (ACICLOVIR) (UNKNOWN) [Concomitant]
  10. PROCHLORPERAZINE (PROCHLORPERAZINE) (UNKNOWN) [Concomitant]
  11. ALPRAZOLAM (ALPRAZOLAM) (UNKNOWN) (ALPRAZOLAM) [Concomitant]
  12. ASPIRIN (ACETYLSALICYLIC ACID) (UNKNOWN) (ACETYLSALICYLIC ACID) [Concomitant]
  13. BACTRIM DS (BACTRIM) (UNKNOWN) [Concomitant]

REACTIONS (3)
  - Hepatic enzyme increased [None]
  - Body temperature [None]
  - Full blood count decreased [None]
